FAERS Safety Report 6155135-2 (Version None)
Quarter: 2009Q2

REPORT INFORMATION
  Report Type: 
  Country: None (occurrence: None)
  Receive Date: 20090415
  Receipt Date: 20090402
  Transmission Date: 20091009
  Serious: Yes (Life-Threatening, Hospitalization)
  Sender: FDA-Public Use
  Company Number: GB-RANBAXY-2009RR-23257

PATIENT
  Age: 49 Year
  Sex: Female

DRUGS (4)
  1. METFORMIN HCL [Suspect]
     Route: 048
  2. ATENOLOL [Concomitant]
     Route: 048
  3. BENDROFLUAZIDE [Concomitant]
     Dosage: 2.5 MG, UNK
     Route: 048
  4. LOSARTAN POTASSIUM [Concomitant]

REACTIONS (3)
  - DEHYDRATION [None]
  - LACTIC ACIDOSIS [None]
  - RENAL FAILURE ACUTE [None]
